FAERS Safety Report 7338724-9 (Version None)
Quarter: 2011Q1

REPORT INFORMATION
  Report Type: 
  Country: None (occurrence: None)
  Receive Date: 20110308
  Receipt Date: 20110228
  Transmission Date: 20110831
  Serious: Yes (Death, Hospitalization)
  Sender: FDA-Public Use
  Company Number: B0702925A

PATIENT
  Sex: Male

DRUGS (3)
  1. RALTEGRAVIR [Concomitant]
     Indication: HIV INFECTION
  2. MARAVIROC [Suspect]
     Indication: HIV INFECTION
     Route: 065
  3. T-20 [Concomitant]
     Indication: HIV INFECTION

REACTIONS (1)
  - CHRONIC OBSTRUCTIVE PULMONARY DISEASE [None]
